FAERS Safety Report 19932896 (Version 1)
Quarter: 2021Q4

REPORT INFORMATION
  Report Type: Spontaneous
  Country: BR (occurrence: BR)
  Receive Date: 20211008
  Receipt Date: 20211008
  Transmission Date: 20220303
  Serious: Yes (Other)
  Sender: FDA-Public Use
  Company Number: BR-GSKCCFAMERS-CASE-01183405_AE-69284

PATIENT
  Sex: Female

DRUGS (1)
  1. VALTREX [Suspect]
     Active Substance: VALACYCLOVIR HYDROCHLORIDE
     Indication: Herpes ophthalmic
     Dosage: 500 MG, 02 CP OF 8/8 HOURS FOR 7 DAYS

REACTIONS (2)
  - Herpes ophthalmic [Unknown]
  - Disease recurrence [Unknown]
